FAERS Safety Report 18357888 (Version 4)
Quarter: 2021Q1

REPORT INFORMATION
  Report Type: Spontaneous
  Country: JP (occurrence: JP)
  Receive Date: 20201007
  Receipt Date: 20210129
  Transmission Date: 20210419
  Serious: Yes (Death, Other)
  Sender: FDA-Public Use
  Company Number: JP-NEUROCRINE BIOSCIENCES INC.-2020NBI03581

PATIENT
  Age: 85 Year
  Sex: Male
  Weight: 44.35 kg

DRUGS (8)
  1. MAGMITT [Concomitant]
     Active Substance: MAGNESIUM OXIDE
     Dates: start: 20140919, end: 20200910
  2. ONGENTYS [Suspect]
     Active Substance: OPICAPONE
     Indication: PARKINSON^S DISEASE
     Route: 048
     Dates: start: 20200901, end: 20200911
  3. SILODOSINE [Concomitant]
     Active Substance: SILODOSIN
     Dates: start: 20140919, end: 20200911
  4. AMLODIPINE OD TYK [Concomitant]
     Active Substance: AMLODIPINE BESYLATE
     Dates: start: 20140919, end: 20200911
  5. PANTOSIN [Concomitant]
     Active Substance: PANTETHINE
     Dates: start: 20140919, end: 20200911
  6. BAYASPIRIN [Concomitant]
     Active Substance: ASPIRIN
     Dates: start: 20140919, end: 20200911
  7. MADOPAR [Concomitant]
     Active Substance: BENSERAZIDE HYDROCHLORIDE\LEVODOPA
     Dates: start: 20140919, end: 20200911
  8. AMANTADINE. [Concomitant]
     Active Substance: AMANTADINE HYDROCHLORIDE
     Dates: start: 20140919, end: 20200911

REACTIONS (2)
  - Cardio-respiratory arrest [Fatal]
  - Acute myocardial infarction [Fatal]

NARRATIVE: CASE EVENT DATE: 20200911
